FAERS Safety Report 23308385 (Version 1)
Quarter: 2023Q4

REPORT INFORMATION
  Report Type: Spontaneous
  Country: US (occurrence: US)
  Receive Date: 20231218
  Receipt Date: 20231218
  Transmission Date: 20240110
  Serious: No
  Sender: FDA-Public Use
  Company Number: US-SA-SAC20231212000175

PATIENT
  Age: 43 Year
  Sex: Female

DRUGS (1)
  1. DUPIXENT [Suspect]
     Active Substance: DUPILUMAB
     Indication: Asthma
     Dosage: 600 MG 1X
     Route: 058

REACTIONS (8)
  - Hypersensitivity [Unknown]
  - Paraesthesia [Unknown]
  - Dyspnoea [Unknown]
  - Flushing [Unknown]
  - Oropharyngeal discomfort [Unknown]
  - Skin swelling [Unknown]
  - Erythema [Unknown]
  - Feeling hot [Unknown]
